FAERS Safety Report 5451804-8 (Version None)
Quarter: 2007Q3

REPORT INFORMATION
  Report Type: 
  Country: None (occurrence: None)
  Receive Date: 20070912
  Receipt Date: 20070910
  Transmission Date: 20080115
  Serious: Yes (Other)
  Sender: FDA-Public Use
  Company Number: THQ2007A00872

PATIENT
  Age: 24 Year
  Sex: Female

DRUGS (9)
  1. DAKAR (LANSOPRAZOLE) [Suspect]
     Dosage: (15 MG) PER ORAL
     Route: 048
     Dates: start: 20020101, end: 20070802
  2. ENBREL [Suspect]
     Indication: PSORIATIC ARTHROPATHY
     Dosage: SUBCUTANEOUS
     Route: 058
     Dates: start: 20070101, end: 20070802
  3. XANAX XR [Suspect]
     Dosage: (1 MG) REDUCED PER ORAL
     Route: 048
     Dates: start: 20020101
  4. RANITIDINE [Concomitant]
  5. CITALOPRAM HYDROBROMIDE [Concomitant]
  6. YASMIN (DROSPIRENONE W/ETHINYLESTRADIOL) [Concomitant]
  7. LEVOTHYROXINE SODIUM [Concomitant]
  8. DIHYDERGOT (DIHYDROERGOTAMINE MESILATE) [Concomitant]
  9. ISOTEN (BISOPROLOL FUMARATE) (TABLETS) [Concomitant]

REACTIONS (15)
  - ALPHA 1 GLOBULIN INCREASED [None]
  - BALANCE DISORDER [None]
  - BALLISMUS [None]
  - BLOOD ALBUMIN DECREASED [None]
  - BLOOD IMMUNOGLOBULIN M INCREASED [None]
  - BLOOD IRON DECREASED [None]
  - DISTURBANCE IN ATTENTION [None]
  - DYSKINESIA [None]
  - GAIT DISTURBANCE [None]
  - HAEMOGLOBIN DECREASED [None]
  - HEADACHE [None]
  - MEMORY IMPAIRMENT [None]
  - MULTIPLE SYSTEM ATROPHY [None]
  - POSITRON EMISSION TOMOGRAM ABNORMAL [None]
  - SERUM FERRITIN DECREASED [None]
